FAERS Safety Report 7701402-8 (Version None)
Quarter: 2011Q3

REPORT INFORMATION
  Report Type: 
  Country: None (occurrence: None)
  Receive Date: 20110822
  Receipt Date: 20110819
  Transmission Date: 20111222
  Serious: No
  Sender: FDA-Public Use
  Company Number: US-PFIZER INC-2011192533

PATIENT
  Sex: Female
  Weight: 88.435 kg

DRUGS (4)
  1. PRISTIQ [Suspect]
     Indication: DEPRESSION
     Dosage: 50 MG, 1X/DAY
     Route: 048
     Dates: start: 20110501, end: 20110101
  2. PRISTIQ [Suspect]
     Indication: ANXIETY
     Dosage: 25 MG, 1X/DAY
     Route: 048
     Dates: start: 20110101
  3. PRISTIQ [Suspect]
     Indication: OBSESSIVE-COMPULSIVE DISORDER
  4. PROZAC [Concomitant]
     Indication: OBSESSIVE-COMPULSIVE DISORDER
     Dosage: UNK

REACTIONS (3)
  - ANXIETY [None]
  - DRUG INEFFECTIVE [None]
  - DEPRESSION [None]
